FAERS Safety Report 6400734-3 (Version None)
Quarter: 2009Q4

REPORT INFORMATION
  Report Type: 
  Country: None (occurrence: None)
  Receive Date: 20091014
  Receipt Date: 20091008
  Transmission Date: 20100525
  Serious: Yes (Death)
  Sender: FDA-Public Use
  Company Number: US-CELGENEUS-163-21880-09100903

PATIENT
  Sex: Female

DRUGS (3)
  1. REVLIMID [Suspect]
     Indication: MYELODYSPLASTIC SYNDROME
     Route: 048
     Dates: start: 20090101
  2. REVLIMID [Suspect]
     Route: 048
     Dates: start: 20081001
  3. REVLIMID [Suspect]
     Dosage: 5-10MG
     Route: 048
     Dates: start: 20061201, end: 20080601

REACTIONS (1)
  - DEATH [None]
